FAERS Safety Report 15049641 (Version 1)
Quarter: 2018Q2

REPORT INFORMATION
  Report Type: Spontaneous
  Country: US (occurrence: US)
  Receive Date: 20180601
  Receipt Date: 20180601
  Transmission Date: 20180711
  Serious: Yes (Hospitalization)
  Sender: FDA-Public Use
  Company Number: None

PATIENT
  Age: 60 Year
  Sex: Female
  Weight: 63.2 kg

DRUGS (1)
  1. BEVACIZUMAB (RHUMAB VEGF) [Suspect]
     Active Substance: BEVACIZUMAB
     Dates: end: 20180515

REACTIONS (8)
  - Malaise [None]
  - Confusional state [None]
  - Parainfluenzae virus infection [None]
  - Cough [None]
  - Upper-airway cough syndrome [None]
  - Rhinorrhoea [None]
  - Aphasia [None]
  - Dehydration [None]

NARRATIVE: CASE EVENT DATE: 20180524
